FAERS Safety Report 21848581 (Version 2)
Quarter: 2023Q1

REPORT INFORMATION
  Report Type: Spontaneous
  Country: US (occurrence: US)
  Receive Date: 20230111
  Receipt Date: 20230111
  Transmission Date: 20230417
  Serious: Yes (Life-Threatening, Hospitalization, Other)
  Sender: FDA-Public Use
  Company Number: US-PFIZER INC-PV202300003769

PATIENT
  Age: 19 Year
  Sex: Female

DRUGS (5)
  1. HEPARIN SODIUM [Suspect]
     Active Substance: HEPARIN SODIUM
     Indication: Hypercoagulation
     Dosage: UNK
  2. ARGATROBAN [Suspect]
     Active Substance: ARGATROBAN
     Dosage: UNK
  3. ASPIRIN [Suspect]
     Active Substance: ASPIRIN
     Indication: Hypercoagulation
     Dosage: 81 MG, DAILY
  4. CLOPIDOGREL [Suspect]
     Active Substance: CLOPIDOGREL BISULFATE
     Indication: Hypercoagulation
     Dosage: 75 MG, DAILY
  5. WARFARIN [Suspect]
     Active Substance: WARFARIN
     Indication: Hypercoagulation
     Dosage: UNK

REACTIONS (1)
  - Drug ineffective [Unknown]
